FAERS Safety Report 11894334 (Version 2)
Quarter: 2016Q1

REPORT INFORMATION
  Report Type: Spontaneous
  Country: US (occurrence: US)
  Receive Date: 20160107
  Receipt Date: 20160225
  Transmission Date: 20160526
  Serious: No
  Sender: FDA-Public Use
  Company Number: PHEH2016US000539

PATIENT
  Age: 11 Year
  Sex: Female
  Weight: 55.6 kg

DRUGS (1)
  1. TOBI [Suspect]
     Active Substance: TOBRAMYCIN
     Indication: BACTERIAL DISEASE CARRIER
     Dosage: BID (EVERY OTHER MONTH)
     Route: 055

REACTIONS (3)
  - Abdominal pain [Recovered/Resolved]
  - Nausea [Unknown]
  - Paraesthesia [Recovered/Resolved]

NARRATIVE: CASE EVENT DATE: 20151221
